FAERS Safety Report 5201101-0 (Version None)
Quarter: 2007Q1

REPORT INFORMATION
  Report Type: 
  Country: None (occurrence: None)
  Receive Date: 20070103
  Receipt Date: 20061219
  Transmission Date: 20070707
  Serious: Yes (Hospitalization)
  Sender: FDA-Public Use
  Company Number: FSC_0023_2006

PATIENT
  Age: 75 Year
  Sex: Male

DRUGS (1)
  1. VERAPAMIL [Suspect]
     Dosage: 120 MG PO
     Route: 048

REACTIONS (17)
  - ABDOMINAL DISCOMFORT [None]
  - ABDOMINAL PAIN [None]
  - ANOREXIA [None]
  - APNOEA [None]
  - ASTHENIA [None]
  - BLOOD ALBUMIN DECREASED [None]
  - CHROMATURIA [None]
  - DIZZINESS [None]
  - HEPATITIS [None]
  - HEPATOMEGALY [None]
  - HEPATOTOXICITY [None]
  - LIVER INJURY [None]
  - NAUSEA [None]
  - PROTHROMBIN TIME SHORTENED [None]
  - SICK SINUS SYNDROME [None]
  - SUPRAVENTRICULAR TACHYCARDIA [None]
  - VERTIGO [None]
